FAERS Safety Report 7762423-2 (Version None)
Quarter: 2011Q3

REPORT INFORMATION
  Report Type: 
  Country: None (occurrence: None)
  Receive Date: 20110920
  Receipt Date: 20110915
  Transmission Date: 20111222
  Serious: Yes (Death, Hospitalization)
  Sender: FDA-Public Use
  Company Number: BR-ABBOTT-11P-020-0731766-00

PATIENT
  Sex: Female
  Weight: 63 kg

DRUGS (4)
  1. LEVOTHYROXINE SODIUM [Concomitant]
     Indication: THYROID DISORDER
     Route: 048
  2. LEVOTHYROXINE SODIUM [Concomitant]
     Indication: WEIGHT DECREASED
  3. HUMIRA [Suspect]
     Indication: RHEUMATOID ARTHRITIS
     Route: 058
     Dates: start: 20080101, end: 20110401
  4. PRELONE [Concomitant]
     Indication: PAIN
     Route: 048

REACTIONS (12)
  - PNEUMONIA [None]
  - ASTHENIA [None]
  - MALNUTRITION [None]
  - BLOOD ALBUMIN DECREASED [None]
  - VOMITING [None]
  - THROMBOSIS [None]
  - GASTROINTESTINAL INFLAMMATION [None]
  - DIVERTICULITIS [None]
  - CARDIAC ARREST [None]
  - ERYSIPELAS [None]
  - DECREASED APPETITE [None]
  - GASTROINTESTINAL BACTERIAL INFECTION [None]
